FAERS Safety Report 7112118-3 (Version None)
Quarter: 2010Q4

REPORT INFORMATION
  Report Type: 
  Country: None (occurrence: None)
  Receive Date: 20101119
  Receipt Date: 20091112
  Transmission Date: 20110411
  Serious: No
  Sender: FDA-Public Use
  Company Number: A0817013A

PATIENT

DRUGS (1)
  1. AVODART [Suspect]

REACTIONS (1)
  - DYSPHONIA [None]
